FAERS Safety Report 21782491 (Version 1)
Quarter: 2022Q4

REPORT INFORMATION
  Report Type: Spontaneous
  Country: US (occurrence: None)
  Receive Date: 20221224
  Receipt Date: 20221224
  Transmission Date: 20230112
  Serious: Yes (Other)
  Sender: FDA-Public Use
  Company Number: None

PATIENT
  Age: 60 Year
  Sex: Female
  Weight: 78.75 kg

DRUGS (2)
  1. MUCINEX INSTASOOTHE SORE THROAT PLUS PAIN RELIEF [Suspect]
     Active Substance: BENZOCAINE\MENTHOL
     Indication: Headache
     Dosage: OTHER QUANTITY : 1 SPRAY(S);?FREQUENCY : 4 TIMES A DAY;?
     Route: 048
     Dates: start: 20221223, end: 20221223
  2. IBUPROFEN [Concomitant]
     Active Substance: IBUPROFEN

REACTIONS (10)
  - Product use in unapproved indication [None]
  - Salivary hypersecretion [None]
  - Lacrimation increased [None]
  - Sinus congestion [None]
  - Throat tightness [None]
  - Speech disorder [None]
  - Dyspnoea [None]
  - Panic reaction [None]
  - Vomiting [None]
  - Neuropathy peripheral [None]

NARRATIVE: CASE EVENT DATE: 20221223
